FAERS Safety Report 6622700-5 (Version None)
Quarter: 2010Q1

REPORT INFORMATION
  Report Type: 
  Country: None (occurrence: None)
  Receive Date: 20100310
  Receipt Date: 20100121
  Transmission Date: 20100710
  Serious: No
  Sender: FDA-Public Use
  Company Number: US-BIOGENIDEC-2010BI002197

PATIENT
  Age: 45 Year
  Sex: Female

DRUGS (3)
  1. AVONEX [Suspect]
     Indication: MULTIPLE SCLEROSIS
     Route: 030
     Dates: end: 19990101
  2. AVONEX [Suspect]
     Route: 030
     Dates: start: 20010401, end: 20030801
  3. AVONEX [Suspect]
     Route: 030
     Dates: start: 20030801

REACTIONS (4)
  - ANXIETY [None]
  - INJECTION SITE ERYTHEMA [None]
  - INJECTION SITE REACTION [None]
  - INJECTION SITE WARMTH [None]
